FAERS Safety Report 4635371-4 (Version None)
Quarter: 2005Q2

REPORT INFORMATION
  Report Type: 
  Country: None (occurrence: None)
  Receive Date: 20050414
  Receipt Date: 20050405
  Transmission Date: 20051028
  Serious: Yes (Other)
  Sender: FDA-Public Use
  Company Number: 2005055371

PATIENT
  Sex: Female
  Weight: 90.7194 kg

DRUGS (13)
  1. LIPITOR [Suspect]
     Indication: BLOOD CHOLESTEROL
     Dosage: 10 MG (10 MG, 1 INI 1 D), ORAL
     Route: 048
     Dates: start: 19890101
  2. VIOXX [Suspect]
     Indication: ILL-DEFINED DISORDER
  3. IRBESARTAN [Concomitant]
  4. AMLODIPINE BESYLATE [Concomitant]
  5. NADOLOL [Concomitant]
  6. ESTROGENS CONJUGATED [Concomitant]
  7. LEVOTHYROXINE SODIUM [Concomitant]
  8. FUROSEMIDE [Concomitant]
  9. TOLTERODINE TARTRATE [Concomitant]
  10. ALL OTHER THERAPEUTIC PRODUCTS [Concomitant]
  11. GLIMEPIRIDE [Concomitant]
  12. CALCIUM CARBONATE [Concomitant]
  13. ACTYLSALICYLIC ACID [Concomitant]

REACTIONS (10)
  - ARTHRALGIA [None]
  - BLOOD CHOLESTEROL INCREASED [None]
  - BLOOD TEST ABNORMAL [None]
  - CONTUSION [None]
  - DRUG EFFECT DECREASED [None]
  - HYPERSENSITIVITY [None]
  - KNEE ARTHROPLASTY [None]
  - LIMB INJURY [None]
  - MUSCLE ATROPHY [None]
  - TENDERNESS [None]
